FAERS Safety Report 9180910 (Version 2)
Quarter: 2013Q2

REPORT INFORMATION
  Report Type: Other
  Country: BR (occurrence: BR)
  Receive Date: 20130322
  Receipt Date: 20130530
  Transmission Date: 20140414
  Serious: Yes (Other)
  Sender: FDA-Public Use
  Company Number: PHHY2013BR027627

PATIENT
  Sex: 0

DRUGS (1)
  1. TEGRETOL CR [Suspect]
     Dosage: UNK UKN, UNK

REACTIONS (1)
  - Drug dependence [Unknown]
